FAERS Safety Report 13530738 (Version 1)
Quarter: 2017Q2

REPORT INFORMATION
  Report Type: Spontaneous
  Country: US (occurrence: US)
  Receive Date: 20170509
  Receipt Date: 20170509
  Transmission Date: 20170830
  Serious: Yes (Death)
  Sender: FDA-Public Use
  Company Number: None

PATIENT
  Age: 56 Year
  Sex: Female

DRUGS (12)
  1. CALCIUM CARBONATE. [Concomitant]
     Active Substance: CALCIUM CARBONATE
  2. ANASTROZOLE. [Concomitant]
     Active Substance: ANASTROZOLE
  3. HUMULIN R [Concomitant]
     Active Substance: INSULIN HUMAN
  4. PRAVASTATIN SODIUM. [Concomitant]
     Active Substance: PRAVASTATIN SODIUM
  5. POTASSIUM CHLORIDE. [Concomitant]
     Active Substance: POTASSIUM CHLORIDE
  6. ATORVASTATIN CALCIUM. [Concomitant]
     Active Substance: ATORVASTATIN CALCIUM
  7. CAPECITABINE. [Suspect]
     Active Substance: CAPECITABINE
     Indication: HYPERPARATHYROIDISM SECONDARY
     Route: 048
  8. LOPERAMIDE HCL [Concomitant]
     Active Substance: LOPERAMIDE HYDROCHLORIDE
  9. ASPIRIN. [Concomitant]
     Active Substance: ASPIRIN
  10. CARVEDILOL. [Concomitant]
     Active Substance: CARVEDILOL
  11. BENZONATATE. [Concomitant]
     Active Substance: BENZONATATE
  12. ZOFRAN [Concomitant]
     Active Substance: ONDANSETRON HYDROCHLORIDE

REACTIONS (1)
  - Death [None]
